FAERS Safety Report 17743782 (Version 7)
Quarter: 2025Q1

REPORT INFORMATION
  Report Type: Spontaneous
  Country: CA (occurrence: CA)
  Receive Date: 20200505
  Receipt Date: 20250320
  Transmission Date: 20250408
  Serious: Yes (Death, Hospitalization, Other)
  Sender: GLAXOSMITHKLINE
  Company Number: CA-GLAXOSMITHKLINE-CA2020GSK075602

PATIENT

DRUGS (35)
  1. LAMIVUDINE [Interacting]
     Active Substance: LAMIVUDINE
     Indication: HIV infection
     Route: 048
  2. BUPROPION [Interacting]
     Active Substance: BUPROPION
     Indication: Bipolar disorder
     Route: 048
  3. ATAZANAVIR SULFATE [Interacting]
     Active Substance: ATAZANAVIR SULFATE
     Indication: HIV infection
     Route: 048
  4. ATAZANAVIR SULFATE [Interacting]
     Active Substance: ATAZANAVIR SULFATE
     Route: 005
  5. QUETIAPINE [Interacting]
     Active Substance: QUETIAPINE
     Indication: Bipolar disorder
     Route: 048
  6. CLONAZEPAM [Interacting]
     Active Substance: CLONAZEPAM
     Indication: Bipolar disorder
     Route: 048
  7. EFAVIRENZ [Interacting]
     Active Substance: EFAVIRENZ
     Indication: HIV infection
     Dosage: 400 MG, BID
     Route: 048
  8. EFAVIRENZ [Interacting]
     Active Substance: EFAVIRENZ
     Dosage: 400 MG, QD
     Route: 048
  9. EFAVIRENZ [Interacting]
     Active Substance: EFAVIRENZ
     Dosage: 1 DF, BID
     Route: 048
  10. KALETRA [Interacting]
     Active Substance: LOPINAVIR\RITONAVIR
     Indication: HIV infection
     Route: 048
  11. LOPINAVIR\RITONAVIR [Interacting]
     Active Substance: LOPINAVIR\RITONAVIR
     Indication: HIV infection
     Route: 048
  12. QUETIAPINE FUMARATE [Interacting]
     Active Substance: QUETIAPINE FUMARATE
     Indication: Bipolar disorder
     Dosage: 2 DF, QD
     Route: 048
  13. QUETIAPINE FUMARATE [Interacting]
     Active Substance: QUETIAPINE FUMARATE
     Route: 048
  14. QUETIAPINE FUMARATE [Interacting]
     Active Substance: QUETIAPINE FUMARATE
     Dosage: 400 MG, QID
     Route: 048
  15. RALTEGRAVIR POTASSIUM [Interacting]
     Active Substance: RALTEGRAVIR POTASSIUM
     Indication: HIV infection
     Dosage: 400 MG, QD
     Route: 048
  16. RALTEGRAVIR POTASSIUM [Interacting]
     Active Substance: RALTEGRAVIR POTASSIUM
     Dosage: 1 DF, QD
     Route: 048
  17. RALTEGRAVIR POTASSIUM [Interacting]
     Active Substance: RALTEGRAVIR POTASSIUM
     Dosage: 400 ML, QD
     Route: 048
  18. RALTEGRAVIR POTASSIUM [Interacting]
     Active Substance: RALTEGRAVIR POTASSIUM
     Dosage: 400 MG, BID
     Route: 048
  19. RALTEGRAVIR POTASSIUM [Interacting]
     Active Substance: RALTEGRAVIR POTASSIUM
     Dosage: 2 DF, QD
     Route: 048
  20. SERTRALINE HYDROCHLORIDE [Interacting]
     Active Substance: SERTRALINE HYDROCHLORIDE
     Indication: Bipolar disorder
     Dosage: 400 MG, BID
     Route: 048
  21. SUSTIVA [Interacting]
     Active Substance: EFAVIRENZ
     Indication: Product used for unknown indication
     Dosage: 400 MG, BID
     Route: 048
  22. SUSTIVA [Interacting]
     Active Substance: EFAVIRENZ
     Dosage: 800 MG, QD
     Route: 048
  23. VALPROIC ACID [Interacting]
     Active Substance: VALPROIC ACID
     Indication: Bipolar disorder
     Route: 065
  24. ZOPICLONE [Interacting]
     Active Substance: ZOPICLONE
     Indication: Bipolar disorder
     Route: 048
  25. ISENTRESS [Interacting]
     Active Substance: RALTEGRAVIR POTASSIUM
     Indication: HIV infection
     Dosage: 400 MG, BID
     Route: 048
  26. SERTRALINE [Interacting]
     Active Substance: SERTRALINE HYDROCHLORIDE
     Indication: Bipolar disorder
     Route: 048
  27. RALTEGRAVIR [Interacting]
     Active Substance: RALTEGRAVIR
     Indication: HIV infection
     Dosage: 400 MG, BID
     Route: 048
  28. RIVOTRIL [Interacting]
     Active Substance: CLONAZEPAM
     Indication: Bipolar disorder
     Route: 048
  29. VALPROATE SODIUM [Interacting]
     Active Substance: VALPROATE SODIUM
     Indication: Bipolar disorder
     Route: 048
  30. ATAZANAVIR [Interacting]
     Active Substance: ATAZANAVIR
     Indication: HIV infection
     Route: 048
  31. ENFUVIRTIDE [Concomitant]
     Active Substance: ENFUVIRTIDE
     Indication: HIV infection
     Route: 058
  32. ENFUVIRTIDE [Concomitant]
     Active Substance: ENFUVIRTIDE
     Indication: Product used for unknown indication
  33. BUPROPION HYDROCHLORIDE [Concomitant]
     Active Substance: BUPROPION HYDROCHLORIDE
     Indication: Product used for unknown indication
  34. ATAZANAVIR SULFATE [Concomitant]
     Active Substance: ATAZANAVIR SULFATE
     Indication: Product used for unknown indication
  35. EFAVIRENZ [Concomitant]
     Active Substance: EFAVIRENZ
     Indication: Product used for unknown indication

REACTIONS (8)
  - Drug interaction [Fatal]
  - Depression [Fatal]
  - Loss of personal independence in daily activities [Fatal]
  - Incorrect route of product administration [Fatal]
  - Intentional product use issue [Fatal]
  - Prescribed overdose [Fatal]
  - Product use in unapproved indication [Fatal]
  - Off label use [Fatal]
